FAERS Safety Report 5595477-2 (Version None)
Quarter: 2008Q1

REPORT INFORMATION
  Report Type: 
  Country: None (occurrence: None)
  Receive Date: 20080116
  Receipt Date: 20080116
  Transmission Date: 20080703
  Serious: No
  Sender: FDA-Public Use
  Company Number: None

PATIENT
  Age: 31 Year
  Sex: Female
  Weight: 86.1834 kg

DRUGS (2)
  1. ZICAM INTENSE SINUS RELIEF   .05% OSYMETAZOLINE  MATRIXX [Suspect]
     Indication: SINUS CONGESTION
     Dosage: 2-3 SPRAYS IN EACH NOSTRIL ONCE
     Route: 045
  2. ZICAM INTENSE SINUS RELIEF   .05% OSYMETAZOLINE  MATRIXX [Suspect]
     Indication: SINUS HEADACHE
     Dosage: 2-3 SPRAYS IN EACH NOSTRIL ONCE
     Route: 045

REACTIONS (2)
  - ANOSMIA [None]
  - NASAL DISCOMFORT [None]
